FAERS Safety Report 7642455-5 (Version None)
Quarter: 2011Q3

REPORT INFORMATION
  Report Type: 
  Country: None (occurrence: None)
  Receive Date: 20110728
  Receipt Date: 20110719
  Transmission Date: 20111222
  Serious: Yes (Hospitalization, Other)
  Sender: FDA-Public Use
  Company Number: US-AMGEN-USASP2011036583

PATIENT
  Sex: Female

DRUGS (1)
  1. ENBREL [Suspect]
     Indication: RHEUMATOID ARTHRITIS
     Dosage: 50 MG, QWK
     Dates: start: 20000501

REACTIONS (8)
  - HYPOKINESIA [None]
  - DIZZINESS [None]
  - HAND DEFORMITY [None]
  - GAIT DISTURBANCE [None]
  - BLOOD TEST ABNORMAL [None]
  - GLAUCOMA [None]
  - BALANCE DISORDER [None]
  - NASOPHARYNGITIS [None]
